FAERS Safety Report 8919791 (Version 1)
Quarter: 2012Q4

REPORT INFORMATION
  Report Type: 
  Country: US (occurrence: US)
  Receive Date: 20121121
  Receipt Date: 20121121
  Transmission Date: 20130627
  Serious: Yes (Other)
  Sender: FDA-Public Use
  Company Number: US-SANOFI-AVENTIS-2012SA082714

PATIENT
  Age: 72 Year
  Sex: Male
  Weight: 79 kg

DRUGS (14)
  1. PLAVIX [Suspect]
     Indication: CAROTID ARTERY OCCLUSION
     Route: 048
     Dates: start: 201205, end: 20121108
  2. ASPIRIN [Concomitant]
  3. VERAPAMIL [Concomitant]
  4. BENICAR [Concomitant]
  5. HYDROCHLOROTHIAZIDE [Concomitant]
  6. PRAVASTATIN [Concomitant]
  7. ZETIA [Concomitant]
  8. CIMETIDINE [Concomitant]
  9. FISH OIL [Concomitant]
  10. VITAMIN D [Concomitant]
  11. MULTIVITAMINS [Concomitant]
  12. AMBIEN [Concomitant]
     Dosage: usually takes once/month
  13. VALIUM [Concomitant]
     Dosage: usually takes once/month
  14. RISPERIDONE [Concomitant]

REACTIONS (6)
  - Carotid artery occlusion [Unknown]
  - Off label use [Unknown]
  - Dizziness [Not Recovered/Not Resolved]
  - Nervousness [Not Recovered/Not Resolved]
  - Psychomotor hyperactivity [Not Recovered/Not Resolved]
  - Dyspnoea [Unknown]
